FAERS Safety Report 21269491 (Version 1)
Quarter: 2022Q3

REPORT INFORMATION
  Report Type: Report from Study
  Country: US (occurrence: US)
  Receive Date: 20220830
  Receipt Date: 20220830
  Transmission Date: 20221027
  Serious: Yes (Hospitalization, Other)
  Sender: FDA-Public Use
  Company Number: US-TAKEDA-2016TUS021122

PATIENT
  Age: 33 Year
  Sex: Female
  Weight: 108.86 kg

DRUGS (20)
  1. VEDOLIZUMAB [Suspect]
     Active Substance: VEDOLIZUMAB
     Indication: Colitis ulcerative
     Dosage: 300 MILLIGRAM
     Route: 042
     Dates: start: 20160515, end: 20170408
  2. CAFFEINE [Concomitant]
     Active Substance: CAFFEINE
     Dosage: UNK
     Route: 048
     Dates: start: 20160829, end: 20161110
  3. CAFFEINE [Concomitant]
     Active Substance: CAFFEINE
     Dosage: UNK UNK, 1/WEEK
     Route: 048
     Dates: start: 20161111, end: 20170214
  4. CAFFEINE [Concomitant]
     Active Substance: CAFFEINE
     Dosage: UNK UNK, 2/MONTH
     Route: 048
     Dates: start: 20170215, end: 20170317
  5. TUMS [Concomitant]
     Active Substance: CALCIUM CARBONATE
     Indication: Dyspepsia
     Dosage: UNK UNK, BID
     Route: 048
     Dates: start: 20160829, end: 20161215
  6. TUMS [Concomitant]
     Active Substance: CALCIUM CARBONATE
     Dosage: UNK UNK, 3/WEEK
     Route: 048
     Dates: start: 20161216, end: 20170408
  7. VITAMIN D NOS [Concomitant]
     Active Substance: VITAMIN D NOS
     Indication: Vitamin D decreased
     Dosage: 2000 INTERNATIONAL UNIT, QD
     Route: 048
     Dates: start: 20160829, end: 20161117
  8. ZOFRAN [Concomitant]
     Active Substance: ONDANSETRON HYDROCHLORIDE
     Indication: Vomiting
     Dosage: 4 MILLIGRAM, QD
     Route: 048
     Dates: start: 20170301, end: 20170301
  9. SODIUM CHLORIDE [Concomitant]
     Active Substance: SODIUM CHLORIDE
     Dosage: UNK UNK, QD
     Route: 042
     Dates: start: 20170226, end: 20170226
  10. REGLAN [Concomitant]
     Active Substance: METOCLOPRAMIDE HYDROCHLORIDE
     Dosage: 5 MILLIGRAM, QD
     Dates: start: 20170226, end: 20170226
  11. METRONIDAZOLE [Concomitant]
     Active Substance: METRONIDAZOLE
     Indication: Bacterial vaginosis
     Dosage: UNK UNK, QD
     Dates: start: 20170109, end: 20170115
  12. IRON [Concomitant]
     Active Substance: IRON
     Dosage: UNK
     Dates: start: 20170301, end: 20170317
  13. HEPARIN [Concomitant]
     Active Substance: HEPARIN SODIUM
     Indication: Thrombosis
     Dosage: UNK UNK, QD
     Route: 042
     Dates: start: 20170318, end: 20170408
  14. BENADRYL [Concomitant]
     Active Substance: DIPHENHYDRAMINE HYDROCHLORIDE
     Dosage: 12.5 MILLIGRAM, QD
     Dates: start: 20170226, end: 20170226
  15. CLOMID [Concomitant]
     Active Substance: CLOMIPHENE CITRATE
     Dosage: 50 MILLIGRAM, QD
     Route: 048
     Dates: start: 20160729, end: 20160802
  16. CLOMID [Concomitant]
     Active Substance: CLOMIPHENE CITRATE
     Dosage: 150 MILLIGRAM, QD
     Route: 048
     Dates: start: 20160815, end: 20160819
  17. DEXAMETHASONE [Concomitant]
     Active Substance: DEXAMETHASONE
     Dosage: UNK UNK, QD
     Route: 048
     Dates: start: 20160727, end: 20160807
  18. LOVENOX [Concomitant]
     Active Substance: ENOXAPARIN SODIUM
     Indication: Thrombosis
     Dosage: 0.7 MILLILITER, BID
     Route: 058
     Dates: start: 20161010, end: 20170317
  19. PROGESTERONE [Concomitant]
     Active Substance: PROGESTERONE
     Dosage: 200 MILLIGRAM, BID
     Route: 067
     Dates: start: 20161016, end: 20161128
  20. TYLENOL [Concomitant]
     Active Substance: ACETAMINOPHEN
     Indication: Pyrexia
     Dosage: 775 MILLIGRAM, QD
     Route: 048
     Dates: start: 20161002, end: 20161018

REACTIONS (2)
  - Pulmonary embolism [Unknown]
  - Pregnancy [Recovered/Resolved]

NARRATIVE: CASE EVENT DATE: 20160829
